FAERS Safety Report 9707303 (Version 1)
Quarter: 2013Q4

REPORT INFORMATION
  Report Type: Spontaneous
  Country: US (occurrence: US)
  Receive Date: 20131125
  Receipt Date: 20131125
  Transmission Date: 20140711
  Serious: No
  Sender: FDA-Public Use
  Company Number: US-GLAXOSMITHKLINE-A1002913A

PATIENT
  Age: 81 Year
  Sex: Male

DRUGS (7)
  1. FLOVENT [Suspect]
     Indication: ASTHMA
     Dosage: 1PUFF PER DAY
     Route: 055
     Dates: start: 201202
  2. RAMIPRIL [Concomitant]
  3. CADUET [Concomitant]
  4. PLAVIX [Concomitant]
  5. RAPAFLO [Concomitant]
  6. ASPIRIN [Concomitant]
  7. ARA-A [Concomitant]

REACTIONS (2)
  - Pruritus [Not Recovered/Not Resolved]
  - Rash [Not Recovered/Not Resolved]
